FAERS Safety Report 10025153 (Version 1)
Quarter: 2014Q1

REPORT INFORMATION
  Report Type: Spontaneous
  Country: JP (occurrence: None)
  Receive Date: 20140212
  Receipt Date: 20140212
  Transmission Date: 20141002
  Serious: Yes (Other)
  Sender: FDA-Public Use
  Company Number: ADR-2011-10172

PATIENT
  Age: 29 Year
  Sex: Male

DRUGS (1)
  1. GABALON [Suspect]
     Indication: MUSCLE SPASTICITY
     Dosage: SEE IMAGE
     Dates: start: 20091001, end: 20110214

REACTIONS (3)
  - Implant site infection [None]
  - Decubitus ulcer [None]
  - Muscle spasms [None]
